FAERS Safety Report 5028603-4 (Version None)
Quarter: 2006Q2

REPORT INFORMATION
  Report Type: 
  Country: None (occurrence: None)
  Receive Date: 20060615
  Receipt Date: 20060615
  Transmission Date: 20061013
  Serious: Yes (Life-Threatening, Hospitalization)
  Sender: FDA-Public Use
  Company Number: None

PATIENT
  Age: 32 Year
  Sex: Male
  Weight: 81 kg

DRUGS (9)
  1. PHENYTOIN [Suspect]
     Indication: CONVULSION
     Dosage: 300MG QAM   400 MG PO QPM DURATION: CHRONIC (2-3YRS)
     Route: 048
  2. HYDRALAZINE HCL [Suspect]
     Indication: HYPERTENSION
     Dosage: 100MG  PO  DAILY   DURATION: CHRONIC
  3. DOXAZOSIN [Concomitant]
  4. ALLEGRA [Concomitant]
  5. COUMADIN [Concomitant]
  6. AVAPRO [Concomitant]
  7. NORVASC [Concomitant]
  8. ATENOLOL [Concomitant]
  9. HYCOTUSS [Concomitant]

REACTIONS (2)
  - ARTERIOVENOUS FISTULA SITE HAEMORRHAGE [None]
  - PANCYTOPENIA [None]
